FAERS Safety Report 4704845-X (Version None)
Quarter: 2005Q2

REPORT INFORMATION
  Report Type: 
  Country: None (occurrence: None)
  Receive Date: 20050629
  Receipt Date: 20050613
  Transmission Date: 20051028
  Serious: Yes (Life-Threatening, Hospitalization, Other)
  Sender: FDA-Public Use
  Company Number: 18969

PATIENT
  Age: 21 Year
  Sex: Female

DRUGS (1)
  1. KETOROLAC TROMETHAMINE INJ. USP 15 MG/1ML - BEN VENUE LABS, INC. [Suspect]

REACTIONS (2)
  - CEREBROVASCULAR OPERATION [None]
  - PANCYTOPENIA [None]
